FAERS Safety Report 7811955-7 (Version None)
Quarter: 2011Q4

REPORT INFORMATION
  Report Type: 
  Country: None (occurrence: None)
  Receive Date: 20111013
  Receipt Date: 20111006
  Transmission Date: 20120403
  Serious: Yes (Other)
  Sender: FDA-Public Use
  Company Number: PHEH2011US06147

PATIENT
  Age: 63 Year
  Sex: Female

DRUGS (13)
  1. TEKTURNA [Suspect]
     Dosage: 300 MG, QD
  2. HEMAX [Concomitant]
     Dosage: UNK
  3. ACETAMINOP. W/BUTALBITAL/CAFF./CODEINE PHOSP. [Concomitant]
     Dosage: UNK UKN, UNK
  4. LOSARTAN POTASSIUM [Concomitant]
     Dosage: 100 MG
  5. TEMAZEPAM [Concomitant]
     Dosage: 15 MG
  6. ZEMPLAR [Concomitant]
     Dosage: 2 MG
  7. CRESTOR [Concomitant]
     Dosage: 10 MG
  8. PANTOPRAZOLE [Concomitant]
     Dosage: 40 MG
  9. LOVAZA [Concomitant]
     Dosage: UNK , BID
  10. PRORENAL [Concomitant]
     Dosage: UNK , QD
  11. ANESTHETICS [Suspect]
     Dosage: UNK
  12. ASPIRIN [Concomitant]
     Dosage: 81 MG
  13. HYDROCODONE BITARTRATE [Concomitant]
     Dosage: 7.5/ 750 MG

REACTIONS (4)
  - BACK PAIN [None]
  - BACK DISORDER [None]
  - RENAL DISORDER [None]
  - AMNESIA [None]
